FAERS Safety Report 4350022-4 (Version None)
Quarter: 2004Q2

REPORT INFORMATION
  Report Type: 
  Country: None (occurrence: None)
  Receive Date: 20040429
  Receipt Date: 20030410
  Transmission Date: 20050107
  Serious: Yes (Hospitalization)
  Sender: FDA-Public Use
  Company Number: GB-BRISTOL-MYERS SQUIBB COMPANY-12235289

PATIENT
  Age: 36 Year
  Sex: Male
  Weight: 67 kg

DRUGS (10)
  1. ATAZANAVIR [Suspect]
     Indication: HIV INFECTION
     Route: 048
     Dates: start: 20030329, end: 20030410
  2. ABACAVIR [Suspect]
     Indication: HIV INFECTION
     Dosage: STOPPED 10-APR-2003/RESTARTED 24-APR-2003
     Route: 048
     Dates: start: 20030328
  3. DIDANOSINE [Concomitant]
     Indication: HIV INFECTION
     Dosage: STOPPED 10-APR-2003/RESTARTED 24-APR-2003
     Route: 048
     Dates: start: 20030328
  4. TENOFOVIR [Concomitant]
     Indication: HIV INFECTION
     Dosage: STOPPED 10-APR-2003/RESTARTED 24-APR-2003
     Route: 048
     Dates: start: 20030328
  5. VALGANCICLOVIR [Concomitant]
     Route: 048
  6. CO-TRIMOXAZOLE [Concomitant]
  7. COTRIM [Concomitant]
     Route: 048
  8. ONDANSETRON HCL [Concomitant]
     Route: 048
  9. AZITHROMYCIN [Concomitant]
     Route: 048
  10. FLUCONAZOLE [Concomitant]
     Route: 048

REACTIONS (2)
  - LOWER RESPIRATORY TRACT INFECTION [None]
  - RASH [None]
